FAERS Safety Report 8133703-6 (Version None)
Quarter: 2012Q1

REPORT INFORMATION
  Report Type: 
  Country: None (occurrence: None)
  Receive Date: 20120213
  Receipt Date: 20120203
  Transmission Date: 20120608
  Serious: Yes (Other)
  Sender: FDA-Public Use
  Company Number: US-ABBOTT-12P-163-0901606-00

PATIENT
  Sex: Male

DRUGS (2)
  1. LYRICA [Suspect]
     Indication: PRODUCT USED FOR UNKNOWN INDICATION
  2. VICODIN [Suspect]
     Indication: PRODUCT USED FOR UNKNOWN INDICATION

REACTIONS (8)
  - CORONARY ARTERY BYPASS [None]
  - STENT PLACEMENT [None]
  - SURGERY [None]
  - CARDIAC PACEMAKER INSERTION [None]
  - MUSCULOSKELETAL PAIN [None]
  - ROTATOR CUFF REPAIR [None]
  - STAPHYLOCOCCAL INFECTION [None]
  - DRUG INEFFECTIVE [None]
